FAERS Safety Report 10033044 (Version 2)
Quarter: 2014Q3

REPORT INFORMATION
  Report Type: Report from Study
  Country: US (occurrence: US)
  Receive Date: 20140324
  Receipt Date: 20140908
  Transmission Date: 20150326
  Serious: Yes (Other)
  Sender: FDA-Public Use
  Company Number: US-ALEXION PHARMACEUTICALS INC.-A200800636

PATIENT
  Age: 55 Year
  Sex: Female

DRUGS (1)
  1. SOLIRIS [Suspect]
     Active Substance: ECULIZUMAB
     Indication: PAROXYSMAL NOCTURNAL HAEMOGLOBINURIA
     Dosage: UNK
     Route: 042

REACTIONS (8)
  - Dehydration [Recovering/Resolving]
  - Asthenia [Not Recovered/Not Resolved]
  - Blood pressure decreased [Unknown]
  - Chest pain [Recovering/Resolving]
  - Packed red blood cell transfusion [Unknown]
  - Dizziness [Unknown]
  - Nausea [Unknown]
  - Orthostatic hypotension [Recovered/Resolved]

NARRATIVE: CASE EVENT DATE: 20080306
